FAERS Safety Report 8878537 (Version 1)
Quarter: 2012Q4

REPORT INFORMATION
  Report Type: 
  Country: US (occurrence: US)
  Receive Date: 20121025
  Receipt Date: 20121025
  Transmission Date: 20130627
  Serious: Yes (Hospitalization)
  Sender: FDA-Public Use
  Company Number: US-AMGEN-USASP2012023729

PATIENT
  Age: 43 Year
  Sex: Female

DRUGS (3)
  1. ENBREL [Suspect]
     Indication: RHEUMATOID ARTHRITIS
     Dosage: 25 mg, 2 times/wk
     Dates: start: 201201, end: 20120402
  2. ENBREL [Suspect]
     Dosage: 25 mg, 2 times/wk
     Dates: start: 20110112, end: 201110
  3. METHOTREXATE [Concomitant]
     Dosage: UNK
     Dates: end: 201110

REACTIONS (4)
  - Staphylococcal infection [Recovered/Resolved]
  - Folliculitis [Recovered/Resolved]
  - Cholelithiasis [Recovered/Resolved]
  - Adverse drug reaction [Recovered/Resolved]
